FAERS Safety Report 16783719 (Version 1)
Quarter: 2019Q3

REPORT INFORMATION
  Report Type: Report from Study
  Country: BR (occurrence: BR)
  Receive Date: 20190908
  Receipt Date: 20190908
  Transmission Date: 20191005
  Serious: Yes (Other)
  Sender: FDA-Public Use
  Company Number: BR-BIOGEN-2019BI00782916

PATIENT
  Age: 55 Year
  Sex: Female

DRUGS (2)
  1. TYSABRI [Suspect]
     Active Substance: NATALIZUMAB
     Indication: MULTIPLE SCLEROSIS
     Route: 042
     Dates: start: 20140820
  2. DIPHENHYDRAMINE HYDROCHLORIDE. [Suspect]
     Active Substance: DIPHENHYDRAMINE HYDROCHLORIDE
     Indication: HYPERSENSITIVITY
     Route: 065
     Dates: start: 201905

REACTIONS (16)
  - Pain [Recovered/Resolved]
  - Anxiety [Unknown]
  - Vomiting [Unknown]
  - Dry throat [Unknown]
  - Somnolence [Unknown]
  - Headache [Unknown]
  - Hypersensitivity [Unknown]
  - Polyuria [Unknown]
  - Heart rate increased [Unknown]
  - Suffocation feeling [Unknown]
  - Pharyngeal haemorrhage [Unknown]
  - Nervousness [Unknown]
  - Dizziness [Unknown]
  - Off label use [Not Recovered/Not Resolved]
  - Lacrimation increased [Unknown]
  - Vision blurred [Unknown]

NARRATIVE: CASE EVENT DATE: 2019
